FAERS Safety Report 10350198 (Version 1)
Quarter: 2014Q3

REPORT INFORMATION
  Report Type: Report from Study
  Country: US (occurrence: US)
  Receive Date: 20140730
  Receipt Date: 20140730
  Transmission Date: 20150326
  Serious: No
  Sender: FDA-Public Use
  Company Number: US-ABBVIE-13P-163-1133801-00

PATIENT
  Sex: Female
  Weight: 67.19 kg

DRUGS (7)
  1. NIFEDIPINE. [Concomitant]
     Active Substance: NIFEDIPINE
     Indication: PRODUCT USED FOR UNKNOWN INDICATION
  2. NIASPAN [Suspect]
     Active Substance: NIACIN
     Indication: BLOOD CHOLESTEROL INCREASED
  3. NIASPAN [Suspect]
     Active Substance: NIACIN
     Dosage: CURRENT DOSE
  4. LIPITOR [Concomitant]
     Active Substance: ATORVASTATIN CALCIUM
     Indication: PRODUCT USED FOR UNKNOWN INDICATION
  5. ASA [Concomitant]
     Active Substance: ASPIRIN
     Indication: PRODUCT USED FOR UNKNOWN INDICATION
  6. LISINOPRIL. [Concomitant]
     Active Substance: LISINOPRIL
     Indication: PRODUCT USED FOR UNKNOWN INDICATION
  7. HCTZ [Concomitant]
     Active Substance: HYDROCHLOROTHIAZIDE
     Indication: PRODUCT USED FOR UNKNOWN INDICATION

REACTIONS (3)
  - Drug ineffective [Recovered/Resolved]
  - Flushing [Recovered/Resolved]
  - Pruritus [Recovered/Resolved]
